FAERS Safety Report 19084544 (Version 1)
Quarter: 2021Q2

REPORT INFORMATION
  Report Type: Spontaneous
  Country: US (occurrence: US)
  Receive Date: 20210401
  Receipt Date: 20210401
  Transmission Date: 20210717
  Serious: No
  Sender: FDA-Public Use
  Company Number: US-IBSA PHARMA-2020-IBS-00739

PATIENT

DRUGS (9)
  1. RAMIPRIL. [Suspect]
     Active Substance: RAMIPRIL
  2. TERAZOSIN [Suspect]
     Active Substance: TERAZOSIN HYDROCHLORIDE
  3. MISOPROSTOL. [Suspect]
     Active Substance: MISOPROSTOL
  4. ELAVIL [ALLOPURINOL] [Suspect]
     Active Substance: ALLOPURINOL
  5. LEVOFLOXACIN. [Suspect]
     Active Substance: LEVOFLOXACIN
  6. VIOXX [Suspect]
     Active Substance: ROFECOXIB
  7. OMEPRAZOLE. [Suspect]
     Active Substance: OMEPRAZOLE
  8. DICLOFENAC EPOLAMINE [Suspect]
     Active Substance: DICLOFENAC EPOLAMINE
  9. CIPROFLOXACIN. [Suspect]
     Active Substance: CIPROFLOXACIN

REACTIONS (1)
  - Drug hypersensitivity [Unknown]
